FAERS Safety Report 7897040-7 (Version None)
Quarter: 2011Q4

REPORT INFORMATION
  Report Type: 
  Country: None (occurrence: None)
  Receive Date: 20111107
  Receipt Date: 20111028
  Transmission Date: 20120403
  Serious: Yes (Life-Threatening, Other)
  Sender: FDA-Public Use
  Company Number: US-JNJFOC-20111100125

PATIENT
  Sex: Female
  Weight: 37.65 kg

DRUGS (27)
  1. HUMIRA [Suspect]
     Indication: CROHN'S DISEASE
     Route: 058
     Dates: start: 20080614, end: 20080601
  2. PERCOGESIC [Concomitant]
     Indication: GASTROINTESTINAL PAIN
     Route: 048
  3. PHENERGAN HCL [Concomitant]
     Indication: VOMITING
     Dosage: 1 IN 1 DAY
     Route: 048
  4. ONDANSETRON [Concomitant]
     Indication: VOMITING
     Dosage: 3 IN 1 DAY
     Route: 048
  5. DICYCLOMINE [Concomitant]
     Indication: ABDOMINAL PAIN
     Dosage: AS REQUIRED
     Route: 065
  6. TRAMADOL HYDROCHLORIDE [Suspect]
     Indication: CROHN'S DISEASE
     Dosage: 3 IN 1 DAY
     Route: 048
     Dates: start: 20080501, end: 20081101
  7. LEVOTHYROXINE SODIUM [Concomitant]
     Indication: HYPOTHYROIDISM
     Route: 065
  8. VICODIN [Concomitant]
     Indication: PAIN
     Dosage: AS REQUIRED
     Route: 065
  9. SAVELLA [Concomitant]
     Indication: ANXIETY
     Dosage: 2 IN 1 DAY
     Route: 065
  10. FOLIC ACID [Concomitant]
     Indication: PRODUCT USED FOR UNKNOWN INDICATION
     Route: 065
  11. AMITRIPTYLINE HCL [Concomitant]
     Indication: SLEEP DISORDER
     Dosage: 1, 1 HOUR BEFORE SLEEP
     Route: 065
  12. ULTRAM [Suspect]
     Indication: PRODUCT USED FOR UNKNOWN INDICATION
     Route: 048
  13. HUMIRA [Suspect]
     Dosage: 1 IN 2 WEEK
     Route: 058
     Dates: start: 20110901
  14. PROCHLORPERAZINE EDISYLATE [Concomitant]
     Indication: NAUSEA
     Dosage: AS REQUIRED
     Route: 048
  15. LEVETIRACETAM [Concomitant]
     Indication: CONVULSION
     Dosage: 1 IN 1 DAY
     Route: 065
  16. HYDROXYZINE EMBONATE [Concomitant]
     Indication: ANXIETY
     Dosage: 2 IN 1 DAY
     Route: 065
  17. HUMIRA [Suspect]
     Dosage: 1 IN 2 WEEK
     Route: 065
     Dates: start: 20110901
  18. ONDANSETRON [Concomitant]
     Indication: NAUSEA
     Dosage: 3 IN 1 DAY
     Route: 048
  19. ALL OTHER THERAPEUTIC PRODUCT [Concomitant]
     Indication: MIGRAINE
     Route: 065
  20. PROCHLORPERAZINE EDISYLATE [Concomitant]
     Indication: VOMITING
     Dosage: AS REQUIRED
     Route: 048
  21. AMITRIPTYLINE HCL [Concomitant]
     Indication: ANXIETY
     Dosage: 1, 1 HOUR BEFORE SLEEP
     Route: 065
  22. HYOMAX [Concomitant]
     Indication: ANTIINFLAMMATORY THERAPY
     Route: 065
  23. HUMIRA [Suspect]
     Dosage: 1 IN 2 WEEK
     Route: 058
     Dates: end: 20090301
  24. FENTANYL [Concomitant]
     Indication: PAIN
     Route: 062
  25. PHENERGAN HCL [Concomitant]
     Indication: NAUSEA
     Dosage: 1 IN 1 DAY
     Route: 048
  26. SUCRALFATE [Concomitant]
     Indication: GASTROOESOPHAGEAL REFLUX DISEASE
     Route: 065
  27. UNKNOWN MEDICATION [Concomitant]
     Indication: PROPHYLAXIS
     Route: 065

REACTIONS (9)
  - APPARENT DEATH [None]
  - RESPIRATORY ARREST [None]
  - VITAMIN B12 DEFICIENCY [None]
  - NAUSEA [None]
  - CONVULSION [None]
  - TENDON INJURY [None]
  - FALL [None]
  - DEHYDRATION [None]
  - CYANOSIS [None]
